FAERS Safety Report 9495476 (Version 2)
Quarter: 2014Q1

REPORT INFORMATION
  Report Type: Spontaneous
  Country: US (occurrence: US)
  Receive Date: 20130903
  Receipt Date: 20140318
  Transmission Date: 20141002
  Serious: Yes (Other)
  Sender: FDA-Public Use
  Company Number: US-BAYER-2013-105015

PATIENT
  Age: 40 Year
  Sex: Female
  Weight: 88.44 kg

DRUGS (3)
  1. MIRENA [Suspect]
     Indication: CONTRACEPTION
     Dosage: 20 MCG/24HR, CONT
     Route: 015
     Dates: start: 20100329, end: 20130118
  2. KLONOPIN [Concomitant]
     Indication: ANXIETY
     Dosage: UNK
     Dates: start: 2004, end: 2013
  3. NASONEX [Concomitant]

REACTIONS (6)
  - Uterine perforation [None]
  - Injury [None]
  - Medical device pain [None]
  - Device dislocation [None]
  - Infection [None]
  - Device issue [None]
